FAERS Safety Report 21621821 (Version 1)
Quarter: 2022Q4

REPORT INFORMATION
  Report Type: Report from Study
  Country: US (occurrence: US)
  Receive Date: 20221121
  Receipt Date: 20221121
  Transmission Date: 20230113
  Serious: No
  Sender: FDA-Public Use
  Company Number: US-ABBVIE-4193319

PATIENT
  Sex: Male

DRUGS (1)
  1. HUMIRA [Suspect]
     Active Substance: ADALIMUMAB
     Indication: Rheumatoid arthritis
     Dosage: CITRATE FREE?START DATE: JUL 2022
     Route: 058

REACTIONS (4)
  - Injection site erythema [Recovering/Resolving]
  - Rheumatoid arthritis [Unknown]
  - Injection site rash [Unknown]
  - Injection site papule [Unknown]

NARRATIVE: CASE EVENT DATE: 20220101
